FAERS Safety Report 4487951-7 (Version None)
Quarter: 2004Q4

REPORT INFORMATION
  Report Type: 
  Country: None (occurrence: None)
  Receive Date: 20041028
  Receipt Date: 20041014
  Transmission Date: 20050328
  Serious: Yes (Death, Life-Threatening, Hospitalization)
  Sender: FDA-Public Use
  Company Number: FR-MERCK-0410FRA00070

PATIENT
  Sex: Female

DRUGS (2)
  1. INDOCIN [Suspect]
     Indication: POISONING
     Route: 048
  2. ACETAMINOPHEN [Suspect]
     Indication: POISONING
     Route: 048

REACTIONS (13)
  - BLOOD CREATININE INCREASED [None]
  - BLOOD PRESSURE DECREASED [None]
  - CARDIAC INDEX DECREASED [None]
  - DRUG TOXICITY [None]
  - ENDOTHELIN INCREASED [None]
  - HEPATIC FAILURE [None]
  - HEPATITIS ACUTE [None]
  - INTENTIONAL OVERDOSE [None]
  - ISCHAEMIA [None]
  - PANCREATITIS NECROTISING [None]
  - SHOCK [None]
  - SYSTEMIC INFLAMMATORY RESPONSE SYNDROME [None]
  - THERAPEUTIC AGENT TOXICITY [None]
